FAERS Safety Report 6276030-4 (Version None)
Quarter: 2009Q3

REPORT INFORMATION
  Report Type: 
  Country: None (occurrence: None)
  Receive Date: 20090722
  Receipt Date: 20070514
  Transmission Date: 20100115
  Serious: Yes (Hospitalization, Disabling)
  Sender: FDA-Public Use
  Company Number: US-ASTRAZENECA-2006UW25442

PATIENT
  Age: 57 Year
  Sex: Male
  Weight: 56.2 kg

DRUGS (9)
  1. SEROQUEL [Suspect]
     Indication: DEPRESSION
     Route: 048
     Dates: start: 20030101
  2. SEROQUEL [Suspect]
     Indication: ANXIETY
     Route: 048
     Dates: start: 20030101
  3. SEROQUEL [Suspect]
     Dosage: 25 MG TO 300 MG
     Route: 048
     Dates: start: 20040920, end: 20051129
  4. SEROQUEL [Suspect]
     Dosage: 25 MG TO 300 MG
     Route: 048
     Dates: start: 20040920, end: 20051129
  5. KLONOPIN [Concomitant]
     Dosage: 1 MG 3 TIMES A DAY AS NEEDED, 1 MG 4 TIMES A DAY
     Route: 048
     Dates: start: 20000424, end: 20051129
  6. NEURONTIN [Concomitant]
     Dosage: 100 MG TO 1800 MG
     Route: 048
     Dates: start: 19991002, end: 20051129
  7. DEPAKOTE [Concomitant]
     Route: 048
     Dates: start: 19990624
  8. WELLBUTRIN SR [Concomitant]
     Dates: start: 20041105
  9. ZYPREXA [Concomitant]
     Route: 048
     Dates: start: 20020510

REACTIONS (4)
  - ARTERIOSCLEROSIS [None]
  - DIABETES MELLITUS [None]
  - TYPE 1 DIABETES MELLITUS [None]
  - TYPE 2 DIABETES MELLITUS [None]
